FAERS Safety Report 9753797 (Version 1)
Quarter: 2013Q4

REPORT INFORMATION
  Report Type: Spontaneous
  Country: US (occurrence: US)
  Receive Date: 20131213
  Receipt Date: 20131213
  Transmission Date: 20140711
  Serious: No
  Sender: FDA-Public Use
  Company Number: US-GILEAD-2010-0027098

PATIENT
  Sex: Male
  Weight: 104.33 kg

DRUGS (21)
  1. LETAIRIS [Suspect]
     Indication: PULMONARY ARTERIAL HYPERTENSION
     Route: 048
     Dates: start: 20081223
  2. AMLODIPINE BESYLATE [Concomitant]
  3. NORVASC [Concomitant]
  4. PROSCAR [Concomitant]
  5. LIPITOR [Concomitant]
  6. ETODOLAC [Concomitant]
  7. FLOMAX [Concomitant]
  8. MAGNESIUM [Concomitant]
  9. TRIAMTERENE/HCTZ [Concomitant]
  10. LUPRON [Concomitant]
  11. CITRACAL [Concomitant]
  12. GLUCOSAMINE [Concomitant]
  13. MSM [Concomitant]
  14. MULTIVITAMIN [Concomitant]
  15. VITAMIN C [Concomitant]
  16. VITAMIN D [Concomitant]
  17. OCUVITE [Concomitant]
  18. CO-Q10 [Concomitant]
  19. ASPIRIN [Concomitant]
  20. VITAMIN E [Concomitant]
  21. CALCIUM [Concomitant]

REACTIONS (2)
  - Night sweats [Unknown]
  - Local swelling [Unknown]
